FAERS Safety Report 9492624 (Version 2)
Quarter: 2013Q3

REPORT INFORMATION
  Report Type: Report from Study
  Country: BR (occurrence: BR)
  Receive Date: 20130830
  Receipt Date: 20130915
  Transmission Date: 20140515
  Serious: Yes (Other)
  Sender: FDA-Public Use
  Company Number: BR-US-EMD SERONO, INC.-7233307

PATIENT
  Age: 35 Year
  Sex: Female

DRUGS (5)
  1. REBIF [Suspect]
     Indication: RELAPSING-REMITTING MULTIPLE SCLEROSIS
     Dates: start: 20110613, end: 20130904
  2. FLUOXETIN [Concomitant]
     Indication: PRODUCT USED FOR UNKNOWN INDICATION
  3. ALPRAZOLAM [Concomitant]
     Indication: PRODUCT USED FOR UNKNOWN INDICATION
  4. ADVIL                              /00109201/ [Concomitant]
     Indication: PRODUCT USED FOR UNKNOWN INDICATION
  5. OMEGA 3 [Concomitant]
     Indication: PRODUCT USED FOR UNKNOWN INDICATION

REACTIONS (16)
  - Choking [Unknown]
  - Hypoaesthesia [Not Recovered/Not Resolved]
  - Dysuria [Unknown]
  - Muscular weakness [Not Recovered/Not Resolved]
  - Vision blurred [Unknown]
  - Fall [Unknown]
  - Contusion [Unknown]
  - Gait disturbance [Unknown]
  - Balance disorder [Unknown]
  - Dysphagia [Unknown]
  - Haematoma [Unknown]
  - Visual impairment [Unknown]
  - Pain [Unknown]
  - Hypoaesthesia [Unknown]
  - Head discomfort [Unknown]
  - Vomiting [Unknown]
